FAERS Safety Report 16230928 (Version 1)
Quarter: 2019Q2

REPORT INFORMATION
  Report Type: Spontaneous
  Country: CA (occurrence: CA)
  Receive Date: 20190423
  Receipt Date: 20190423
  Transmission Date: 20190711
  Serious: Yes (Hospitalization, Other)
  Sender: FDA-Public Use
  Company Number: CA-AMGEN-CANSP2019062596

PATIENT
  Sex: Female

DRUGS (10)
  1. TYLENOL [Suspect]
     Active Substance: ACETAMINOPHEN
     Indication: PYREXIA
     Dosage: UNK
     Route: 065
     Dates: start: 201810
  2. 5-FU [FLUOROURACIL] [Concomitant]
     Active Substance: FLUOROURACIL
     Indication: BREAST CANCER STAGE II
     Dosage: UNK
     Dates: start: 201808
  3. TYLENOL [Suspect]
     Active Substance: ACETAMINOPHEN
     Indication: VIRAL INFECTION
  4. ADVIL [Suspect]
     Active Substance: IBUPROFEN
     Indication: PYREXIA
     Dosage: UNK
     Route: 065
     Dates: start: 201810
  5. ADVIL [Suspect]
     Active Substance: IBUPROFEN
     Indication: YELLOW SKIN
  6. EPIRUBICIN [Concomitant]
     Active Substance: EPIRUBICIN
     Indication: BREAST CANCER STAGE II
     Dosage: UNK
     Dates: start: 201808
  7. TYLENOL [Suspect]
     Active Substance: ACETAMINOPHEN
     Indication: YELLOW SKIN
     Dosage: UNK
     Route: 065
     Dates: start: 201904
  8. CYCLOPHOSPHAMIDE. [Concomitant]
     Active Substance: CYCLOPHOSPHAMIDE
     Indication: BREAST CANCER STAGE II
     Dosage: UNK
     Dates: start: 201808
  9. NEULASTA [Suspect]
     Active Substance: PEGFILGRASTIM
     Indication: NEUTROPENIA
     Dosage: 6 MILLIGRAM
     Route: 065
     Dates: start: 201808, end: 201811
  10. DOCETAXEL. [Concomitant]
     Active Substance: DOCETAXEL
     Indication: BREAST CANCER STAGE II
     Dosage: UNK
     Dates: start: 201810

REACTIONS (7)
  - Yellow skin [Unknown]
  - Dyspepsia [Unknown]
  - Pyrexia [Unknown]
  - Blood test abnormal [Not Recovered/Not Resolved]
  - Haemolytic anaemia [Unknown]
  - Gastric ulcer haemorrhage [Unknown]
  - Viral infection [Unknown]

NARRATIVE: CASE EVENT DATE: 2018
